FAERS Safety Report 10480548 (Version 1)
Quarter: 2014Q3

REPORT INFORMATION
  Report Type: Spontaneous
  Country: US (occurrence: None)
  Receive Date: 20140926
  Receipt Date: 20140926
  Transmission Date: 20150326
  Serious: Yes (Life-Threatening)
  Sender: FDA-Public Use
  Company Number: None

PATIENT
  Age: 49 Year
  Sex: Female
  Weight: 73.48 kg

DRUGS (1)
  1. SULFAMETHOXAZOLE-TRIMETHOPRIM (SMZ) [Suspect]
     Active Substance: SULFAMETHOXAZOLE\TRIMETHOPRIM
     Indication: URINARY TRACT INFECTION
     Dosage: 1 DOSE TWICE DAILY TAKEN BY MOUTH
     Route: 048
     Dates: start: 20140915, end: 20140918

REACTIONS (5)
  - Tongue blistering [None]
  - Pain [None]
  - Hypoaesthesia [None]
  - Poor peripheral circulation [None]
  - Pain in extremity [None]

NARRATIVE: CASE EVENT DATE: 20140915
